FAERS Safety Report 6742694-1 (Version None)
Quarter: 2010Q2

REPORT INFORMATION
  Report Type: 
  Country: None (occurrence: None)
  Receive Date: 20100526
  Receipt Date: 20090826
  Transmission Date: 20101027
  Serious: No
  Sender: FDA-Public Use
  Company Number: US-ABBOTT-09P-163-0594580-00

PATIENT
  Sex: Female

DRUGS (4)
  1. ZEMPLAR [Suspect]
     Indication: NEPHROPATHY
     Dosage: UNKNOWN
     Dates: start: 20090604, end: 20090701
  2. BUMETANIDE [Concomitant]
     Indication: NEPHROPATHY
     Dates: start: 20090101
  3. COUMADIN [Concomitant]
     Indication: CARDIAC DISORDER
     Dosage: UNKNOWN
  4. COUMADIN [Concomitant]
     Indication: RHEUMATIC FEVER

REACTIONS (3)
  - EARLY SATIETY [None]
  - POLLAKIURIA [None]
  - WEIGHT DECREASED [None]
